FAERS Safety Report 8110329-1 (Version None)
Quarter: 2012Q1

REPORT INFORMATION
  Report Type: 
  Country: None (occurrence: None)
  Receive Date: 20120202
  Receipt Date: 20120123
  Transmission Date: 20120608
  Serious: Yes (Other)
  Sender: FDA-Public Use
  Company Number: AR-ROCHE-1017065

PATIENT
  Sex: Female

DRUGS (3)
  1. LUCENTIS [Suspect]
     Indication: RETINAL VASCULAR THROMBOSIS
  2. LUCENTIS [Suspect]
     Indication: MACULOPATHY
     Route: 050
     Dates: start: 20090327
  3. ANAESTHETICS [Concomitant]

REACTIONS (7)
  - ANAESTHETIC COMPLICATION [None]
  - EYE PAIN [None]
  - DRUG INEFFECTIVE [None]
  - MALAISE [None]
  - EYE INFECTION [None]
  - CATARACT [None]
  - VISUAL ACUITY REDUCED [None]
